FAERS Safety Report 10757504 (Version 3)
Quarter: 2016Q1

REPORT INFORMATION
  Report Type: Spontaneous
  Country: ID (occurrence: ID)
  Receive Date: 20150203
  Receipt Date: 20160114
  Transmission Date: 20160525
  Serious: Yes (Death, Hospitalization)
  Sender: FDA-Public Use
  Company Number: ID-ROCHE-1529513

PATIENT
  Age: 43 Year
  Sex: Female
  Weight: 50 kg

DRUGS (2)
  1. METHOTREXATE [Concomitant]
     Active Substance: METHOTREXATE
     Route: 065
  2. ACTEMRA [Suspect]
     Active Substance: TOCILIZUMAB
     Indication: JUVENILE IDIOPATHIC ARTHRITIS
     Dosage: LAST DOSE PRIOR TO SAE: /DEC/2014
     Route: 042
     Dates: start: 201407

REACTIONS (6)
  - Anaphylactic shock [Fatal]
  - Diarrhoea [Unknown]
  - Arthropathy [Unknown]
  - Pain [Unknown]
  - Pyrexia [Unknown]
  - Hypotension [Fatal]
